FAERS Safety Report 24400032 (Version 1)
Quarter: 2024Q4

REPORT INFORMATION
  Report Type: Report from Study
  Country: US (occurrence: US)
  Receive Date: 20241005
  Receipt Date: 20241005
  Transmission Date: 20250115
  Serious: Yes (Hospitalization)
  Sender: SANOFI AVENTIS
  Company Number: US-SA-2024SA285144

PATIENT
  Age: 60 Year
  Sex: Female

DRUGS (4)
  1. ZOLPIDEM TARTRATE [Suspect]
     Active Substance: ZOLPIDEM TARTRATE
     Indication: Insomnia
     Dosage: 5 MG
  2. SERTRALINE [Concomitant]
     Active Substance: SERTRALINE HYDROCHLORIDE
     Dosage: 100 MG, QD
  3. BUPROPION [Concomitant]
     Active Substance: BUPROPION
     Dosage: 150 MG, QD
  4. CEFDINIR [Concomitant]
     Active Substance: CEFDINIR
     Indication: Asymptomatic bacteriuria
     Dosage: UNK

REACTIONS (4)
  - Mental status changes [Recovering/Resolving]
  - Dissociation [Recovering/Resolving]
  - Memory impairment [Recovering/Resolving]
  - Abnormal behaviour [Recovering/Resolving]
